FAERS Safety Report 23159680 (Version 4)
Quarter: 2024Q2

REPORT INFORMATION
  Report Type: Spontaneous
  Country: US (occurrence: US)
  Receive Date: 20231108
  Receipt Date: 20240425
  Transmission Date: 20240716
  Serious: Yes (Hospitalization)
  Sender: FDA-Public Use
  Company Number: US-AVADEL CNS PHARMACEUTICALS, LLC-2023AVA00096

PATIENT
  Sex: Female

DRUGS (21)
  1. LUMRYZ [Suspect]
     Active Substance: SODIUM OXYBATE
     Indication: Narcolepsy
     Dosage: 7.5 G
     Route: 048
     Dates: start: 20230728, end: 202308
  2. LUMRYZ [Suspect]
     Active Substance: SODIUM OXYBATE
     Indication: Narcolepsy
     Dosage: 9 G, ONCE NIGHTLY
     Route: 048
     Dates: start: 202308, end: 2023
  3. LUMRYZ [Suspect]
     Active Substance: SODIUM OXYBATE
     Dosage: 9 G, EACH NIGHT
     Route: 048
     Dates: start: 2023
  4. LUMRYZ [Suspect]
     Active Substance: SODIUM OXYBATE
     Dosage: 9 G, EACH NIGHT
     Route: 048
     Dates: start: 2023
  5. AMLODIPINE BESYLATE [Concomitant]
     Active Substance: AMLODIPINE BESYLATE
  6. SINGULAIR [Concomitant]
     Active Substance: MONTELUKAST SODIUM
  7. AMITRIPTYLINE HYDROCHLORIDE [Concomitant]
     Active Substance: AMITRIPTYLINE HYDROCHLORIDE
  8. CLOPIDOGREL [Concomitant]
     Active Substance: CLOPIDOGREL BISULFATE
  9. ATORVASTATIN CALCIUM [Concomitant]
     Active Substance: ATORVASTATIN CALCIUM
  10. VITAMINS NOS [Concomitant]
     Active Substance: VITAMINS
  11. ADDERALL [Concomitant]
     Active Substance: AMPHETAMINE ASPARTATE\AMPHETAMINE SULFATE\DEXTROAMPHETAMINE SACCHARATE\DEXTROAMPHETAMINE SULFATE
  12. ADDERALL XR [Concomitant]
     Active Substance: AMPHETAMINE ASPARTATE\AMPHETAMINE SULFATE\DEXTROAMPHETAMINE SACCHARATE\DEXTROAMPHETAMINE SULFATE
  13. AZELASTINE HYDROCHLORIDE [Concomitant]
     Active Substance: AZELASTINE HYDROCHLORIDE
  14. OXYBUTYNIN CHLORIDE [Concomitant]
     Active Substance: OXYBUTYNIN CHLORIDE
  15. UBRELVY [Concomitant]
     Active Substance: UBROGEPANT
  16. EMGALITY [Concomitant]
     Active Substance: GALCANEZUMAB-GNLM
  17. FAMOTIDINE [Concomitant]
     Active Substance: FAMOTIDINE
  18. ONDANSETRON HYDROCHLORIDE [Concomitant]
     Active Substance: ONDANSETRON HYDROCHLORIDE
  19. DEXILANT [Concomitant]
     Active Substance: DEXLANSOPRAZOLE
  20. LIDOCAINE HCL VISCOUS WEST-WARD [Concomitant]
  21. CARAFATE [Concomitant]
     Active Substance: SUCRALFATE

REACTIONS (10)
  - Cerebrovascular accident [Unknown]
  - Facial paralysis [Unknown]
  - Nasopharyngitis [Unknown]
  - Seasonal allergy [Unknown]
  - Gastrooesophageal reflux disease [Not Recovered/Not Resolved]
  - Migraine [Not Recovered/Not Resolved]
  - Metabolic surgery [Unknown]
  - Renal disorder [Unknown]
  - Hypertension [Unknown]
  - Dry mouth [Unknown]

NARRATIVE: CASE EVENT DATE: 20230101
